FAERS Safety Report 17820848 (Version 1)
Quarter: 2020Q2

REPORT INFORMATION
  Report Type: Spontaneous
  Country: GR (occurrence: GR)
  Receive Date: 20200525
  Receipt Date: 20200525
  Transmission Date: 20200714
  Serious: Yes (Other)
  Sender: FDA-Public Use
  Company Number: GR-TEVA-2020-GR-1239390

PATIENT
  Age: 57 Year
  Sex: Male

DRUGS (2)
  1. OXALIPLATIN. [Suspect]
     Active Substance: OXALIPLATIN
     Indication: PANCREATIC CARCINOMA METASTATIC
     Dosage: ONCE EVERY 15 DAYS
     Route: 065
  2. GEMCITABINE. [Suspect]
     Active Substance: GEMCITABINE
     Indication: PANCREATIC CARCINOMA METASTATIC
     Dosage: ONCE EVERY 15 DAYS
     Route: 065

REACTIONS (2)
  - Arterial occlusive disease [Unknown]
  - Thrombosis [Unknown]
